FAERS Safety Report 4893549-9 (Version None)
Quarter: 2006Q1

REPORT INFORMATION
  Report Type: 
  Country: None (occurrence: None)
  Receive Date: 20060124
  Receipt Date: 20060112
  Transmission Date: 20060701
  Serious: Yes (Hospitalization, Other)
  Sender: FDA-Public Use
  Company Number: HQWYE313412JAN06

PATIENT
  Age: 96 Year
  Sex: Female

DRUGS (4)
  1. OROKEN           (CEFIXIME) [Suspect]
     Indication: URINARY TRACT INFECTION
     Route: 048
     Dates: start: 20050225, end: 20050302
  2. MANTADIX             (AMANTADINE HYDROCHLORIDE) [Concomitant]
  3. LIORESAL [Concomitant]
  4. CLONAZEPAM [Concomitant]

REACTIONS (1)
  - CLOSTRIDIUM COLITIS [None]
